FAERS Safety Report 4804618-3 (Version None)
Quarter: 2005Q4

REPORT INFORMATION
  Report Type: 
  Country: None (occurrence: None)
  Receive Date: 20051017
  Receipt Date: 20051003
  Transmission Date: 20060501
  Serious: Yes (Hospitalization)
  Sender: FDA-Public Use
  Company Number: 2005137161

PATIENT
  Age: 84 Year
  Sex: Male

DRUGS (6)
  1. CELEBREX [Suspect]
     Indication: ILL-DEFINED DISORDER
     Dosage: 200 MG (1 IN 1 D), ORAL
     Route: 048
     Dates: start: 20050710, end: 20050826
  2. TRAMADOL HCL [Concomitant]
  3. KARDEGIC (ACETYLSALICYLATE LYSINE) [Concomitant]
  4. TRANDOLAPRIL [Concomitant]
  5. BROMAZEPAM  (BROMAZEPAM) [Concomitant]
  6. PANTOPRAZOLE SODIUM [Concomitant]

REACTIONS (20)
  - AGGRESSION [None]
  - BALANCE DISORDER [None]
  - CEREBRAL VENTRICLE DILATATION [None]
  - CONFUSIONAL STATE [None]
  - DEHYDRATION [None]
  - DISORIENTATION [None]
  - ELECTROCARDIOGRAM Q WAVES [None]
  - ELECTROCARDIOGRAM ST SEGMENT ELEVATION [None]
  - FALL [None]
  - GAIT DISTURBANCE [None]
  - HALLUCINATION, VISUAL [None]
  - HYPONATRAEMIA [None]
  - HYPOTENSION [None]
  - IMPULSIVE BEHAVIOUR [None]
  - MALAISE [None]
  - OCULAR HYPERTENSION [None]
  - SLEEP PHASE RHYTHM DISTURBANCE [None]
  - SOMNOLENCE [None]
  - SPEECH DISORDER [None]
  - VARICOSE VEIN [None]
